FAERS Safety Report 6536804-9 (Version None)
Quarter: 2010Q1

REPORT INFORMATION
  Report Type: 
  Country: None (occurrence: None)
  Receive Date: 20100113
  Receipt Date: 20100107
  Transmission Date: 20100710
  Serious: Yes (Hospitalization, Other)
  Sender: FDA-Public Use
  Company Number: US-AMGEN-QUU381549

PATIENT
  Sex: Female

DRUGS (8)
  1. ENBREL [Suspect]
     Indication: PSORIATIC ARTHROPATHY
     Route: 058
     Dates: start: 20030110
  2. ENBREL [Suspect]
     Indication: PSORIASIS
  3. LORATADINE [Concomitant]
  4. SPIRONOLACTONE [Concomitant]
  5. ALENDRONATE SODIUM [Concomitant]
  6. WESTCORT [Concomitant]
  7. CANDESARTAN CILEXETIL [Concomitant]
  8. CALCIPOTRIENE [Concomitant]

REACTIONS (4)
  - BASAL CELL CARCINOMA [None]
  - PATELLA FRACTURE [None]
  - ROAD TRAFFIC ACCIDENT [None]
  - TIBIA FRACTURE [None]
